FAERS Safety Report 10111037 (Version 2)
Quarter: 2014Q2

REPORT INFORMATION
  Report Type: Spontaneous
  Country: US (occurrence: US)
  Receive Date: 20140425
  Receipt Date: 20140613
  Transmission Date: 20141212
  Serious: Yes (Death)
  Sender: FDA-Public Use
  Company Number: 2014SP001822

PATIENT
  Age: 62 Year
  Sex: Male
  Weight: 167 kg

DRUGS (1)
  1. LATUDA [Suspect]
     Indication: SCHIZOPHRENIA
     Route: 048
     Dates: start: 201401, end: 201401

REACTIONS (10)
  - Myocardial infarction [Fatal]
  - Dyspnoea [Unknown]
  - Ocular hyperaemia [Unknown]
  - Paranoia [Unknown]
  - Incontinence [Unknown]
  - Foaming at mouth [Unknown]
  - Tongue discolouration [Unknown]
  - Fatigue [Unknown]
  - Muscle rigidity [Unknown]
  - Drug titration error [None]
